FAERS Safety Report 8376387-4 (Version None)
Quarter: 2012Q2

REPORT INFORMATION
  Report Type: 
  Country: None (occurrence: None)
  Receive Date: 20120522
  Receipt Date: 20120515
  Transmission Date: 20120825
  Serious: Yes (Hospitalization, Other)
  Sender: FDA-Public Use
  Company Number: PHHY2012US041363

PATIENT
  Age: 8 Year
  Sex: Female

DRUGS (8)
  1. CLONIDINE [Suspect]
     Indication: ATTENTION DEFICIT/HYPERACTIVITY DISORDER
  2. DEXTROAMPHETAMINE [Concomitant]
     Indication: ATTENTION DEFICIT/HYPERACTIVITY DISORDER
  3. ADDERALL 5 [Concomitant]
     Indication: ATTENTION DEFICIT/HYPERACTIVITY DISORDER
  4. ADDERALL 5 [Concomitant]
     Indication: BIPOLAR DISORDER
     Dosage: 50 MG, UNK
  5. CLONIDINE [Suspect]
     Indication: BIPOLAR DISORDER
     Dosage: 0.4 MG, QHS
  6. RISPERIDONE [Concomitant]
     Indication: BIPOLAR DISORDER
     Dosage: 1 MG, BID
  7. RISPERIDONE [Concomitant]
     Indication: ATTENTION DEFICIT/HYPERACTIVITY DISORDER
  8. DEXTROAMPHETAMINE [Concomitant]
     Indication: BIPOLAR DISORDER

REACTIONS (8)
  - VOMITING [None]
  - ABDOMINAL TENDERNESS [None]
  - WITHDRAWAL HYPERTENSION [None]
  - REBOUND EFFECT [None]
  - ABDOMINAL PAIN [None]
  - MALIGNANT HYPERTENSION [None]
  - GRAND MAL CONVULSION [None]
  - ILEUS [None]
